FAERS Safety Report 8677935 (Version 5)
Quarter: 2013Q2

REPORT INFORMATION
  Report Type: Report from Study
  Country: JP (occurrence: JP)
  Receive Date: 20120723
  Receipt Date: 20130617
  Transmission Date: 20140414
  Serious: Yes (Hospitalization, Other)
  Sender: FDA-Public Use
  Company Number: JP-009507513-1207JPN007359

PATIENT
  Age: 56 Year
  Sex: Female
  Weight: 59 kg

DRUGS (22)
  1. PEGINTRON [Suspect]
     Indication: CHRONIC HEPATITIS C
     Dosage: 1.5 MICROGRAM PER KILOGRAM PER WEEK, UNK
     Route: 058
     Dates: start: 20120510, end: 20120531
  2. PEGINTRON [Suspect]
     Dosage: 1.03 MICROGRAM PER KILOGRAM PER WEEK, QW
     Route: 058
     Dates: start: 20120601, end: 20120621
  3. PEGINTRON [Suspect]
     Dosage: 1.03 MICROGRAM PER KILOGRAM, QW
     Route: 058
     Dates: start: 20120705
  4. REBETOL [Suspect]
     Indication: CHRONIC HEPATITIS C
     Dosage: 600 MG, QD
     Route: 048
     Dates: start: 20120510, end: 20120531
  5. REBETOL [Suspect]
     Dosage: 400 MG, QD
     Route: 048
     Dates: start: 20120601, end: 20120614
  6. REBETOL [Suspect]
     Dosage: 200 MG, QD
     Route: 048
     Dates: start: 20120615, end: 20120621
  7. REBETOL [Suspect]
     Dosage: 400 MG, QD
     Route: 048
     Dates: start: 20120705
  8. TELAVIC [Suspect]
     Indication: CHRONIC HEPATITIS C
     Dosage: 1500 MG, QD
     Route: 048
     Dates: start: 20120510, end: 20120531
  9. TELAVIC [Suspect]
     Dosage: 1000 MG, QD
     Route: 048
     Dates: start: 20120601, end: 20120614
  10. TELAVIC [Suspect]
     Dosage: 500 MG, QD
     Route: 048
     Dates: start: 20120615, end: 20120621
  11. TELAVIC [Suspect]
     Dosage: 500 MG, QD
     Route: 048
     Dates: start: 20120705, end: 20120726
  12. TELAVIC [Suspect]
     Dosage: 1000 MG, QD
     Route: 048
     Dates: start: 20120727, end: 20120819
  13. GLYCORAN [Concomitant]
     Indication: DIABETES MELLITUS
     Dosage: 750 MG, QD (FORMULATION: POR)
     Route: 048
  14. OLMETEC [Concomitant]
     Indication: HYPERTENSION
     Dosage: 20 MG, QD (FORMULATION: POR)
     Route: 048
  15. JANUVIA TABLETS 50MG [Concomitant]
     Indication: DIABETES MELLITUS
     Dosage: 50 MG, QD (FORMULATION: POR)
     Route: 048
  16. ATELEC [Concomitant]
     Indication: HYPERTENSION
     Dosage: 1 DF, QD
     Route: 048
  17. ALOSENN (SENNA) [Concomitant]
     Indication: CONSTIPATION
     Dosage: 2 G, QD (FORMULATION: POR)
     Route: 048
  18. ALOSENN (SENNA) [Concomitant]
     Indication: DIABETES MELLITUS
  19. GLUBES [Concomitant]
     Indication: DIABETES MELLITUS
     Dosage: 3 DF, QD
     Route: 048
  20. GASTER D [Concomitant]
     Dosage: 20 MG, QD (FORMULATION:POR)
     Route: 048
     Dates: start: 20120513, end: 20120519
  21. LOXONIN [Concomitant]
     Indication: PROPHYLAXIS
     Dosage: 60 MG/ DAY AS NEEDED, PRN
     Route: 048
     Dates: start: 20120629
  22. VOLTAREN [Concomitant]
     Indication: PROPHYLAXIS
     Dosage: 25 MG /DAY AS NEEDED, PRN
     Route: 054
     Dates: start: 20120629

REACTIONS (3)
  - Anaemia [Not Recovered/Not Resolved]
  - Anaemia [Recovered/Resolved]
  - Decreased appetite [Recovered/Resolved]
